FAERS Safety Report 17112752 (Version 1)
Quarter: 2019Q4

REPORT INFORMATION
  Report Type: Report from Study
  Country: NL (occurrence: ES)
  Receive Date: 20191204
  Receipt Date: 20191204
  Transmission Date: 20200122
  Serious: Yes (Hospitalization)
  Sender: FDA-Public Use
  Company Number: ES-BAYER-2019-217454

PATIENT
  Age: 78 Year
  Sex: Female

DRUGS (2)
  1. NAPROXENO [Suspect]
     Active Substance: NAPROXEN
     Indication: INJURY
     Dosage: UNK
     Route: 048
     Dates: start: 20170511, end: 20170518
  2. METAMIZOL [Suspect]
     Active Substance: METAMIZOLE SODIUM
     Indication: INJURY
     Dosage: UNK
     Route: 048
     Dates: start: 20170511, end: 2017

REACTIONS (1)
  - Tubulointerstitial nephritis [Recovered/Resolved]

NARRATIVE: CASE EVENT DATE: 201705
